FAERS Safety Report 23251888 (Version 1)
Quarter: 2023Q4

REPORT INFORMATION
  Report Type: Report from Study
  Country: US (occurrence: None)
  Receive Date: 20231201
  Receipt Date: 20231201
  Transmission Date: 20240110
  Serious: Yes (Hospitalization, Other)
  Sender: FDA-Public Use
  Company Number: 2023A268520

PATIENT
  Sex: Male
  Weight: 92 kg

DRUGS (1)
  1. CALQUENCE [Suspect]
     Active Substance: ACALABRUTINIB
     Indication: Lymphocytic leukaemia
     Route: 048

REACTIONS (5)
  - Hypotension [Unknown]
  - Seizure [Unknown]
  - Dizziness [Unknown]
  - Confusional state [Unknown]
  - Muscle disorder [Unknown]
